FAERS Safety Report 9541608 (Version 1)
Quarter: 2013Q3

REPORT INFORMATION
  Report Type: Spontaneous
  Country: CA (occurrence: CA)
  Receive Date: 20130923
  Receipt Date: 20130923
  Transmission Date: 20140515
  Serious: Yes (Other)
  Sender: FDA-Public Use
  Company Number: CA-ROCHE-1278847

PATIENT
  Sex: Female

DRUGS (4)
  1. XOLAIR [Suspect]
     Indication: ASTHMA
     Route: 058
     Dates: start: 20130320
  2. BRICANYL [Concomitant]
  3. SPIRIVA [Concomitant]
  4. SINGULAIR [Concomitant]

REACTIONS (1)
  - Gastroenteritis [Unknown]
